FAERS Safety Report 7328145-7 (Version None)
Quarter: 2011Q1

REPORT INFORMATION
  Report Type: 
  Country: None (occurrence: None)
  Receive Date: 20110303
  Receipt Date: 20110221
  Transmission Date: 20110831
  Serious: Yes (Other)
  Sender: FDA-Public Use
  Company Number: PHHY2010JP80023

PATIENT
  Age: 78 Year
  Sex: Female
  Weight: 43 kg

DRUGS (9)
  1. BONALON [Concomitant]
     Indication: OSTEOPOROSIS
     Dosage: 5MG
     Dates: start: 20091112
  2. EXJADE [Suspect]
     Indication: MULTIPLE MYELOMA
     Dosage: 875 MG
     Route: 048
     Dates: start: 20091112, end: 20100715
  3. THALIDOMIDE [Concomitant]
     Indication: MULTIPLE MYELOMA
     Dosage: 100MG
     Route: 048
     Dates: start: 20091112
  4. ALOSENN [Concomitant]
     Indication: CONSTIPATION
     Dosage: 1G
     Route: 048
     Dates: start: 20091112
  5. RED CELLS MAP [Concomitant]
     Dosage: 2 UNITS ONCE A WEEK
  6. PURSENNID [Concomitant]
     Indication: CONSTIPATION
     Dosage: 36MG
     Route: 048
     Dates: start: 20091112
  7. DOGMATYL [Concomitant]
     Dosage: 150MG
     Route: 048
     Dates: start: 20091112
  8. GASMOTIN [Concomitant]
     Indication: GASTRITIS
     Dosage: 15MG
     Route: 048
     Dates: start: 20100216
  9. MAGLAX [Concomitant]
     Dosage: 1500MG
     Route: 048
     Dates: start: 20091112

REACTIONS (5)
  - NEOPLASM MALIGNANT [None]
  - RENAL IMPAIRMENT [None]
  - DEHYDRATION [None]
  - DEMENTIA [None]
  - GASTRITIS [None]
